FAERS Safety Report 9233629 (Version 1)
Quarter: 2013Q2

REPORT INFORMATION
  Report Type: Spontaneous
  Country: US (occurrence: US)
  Receive Date: 20130416
  Receipt Date: 20130416
  Transmission Date: 20140414
  Serious: No
  Sender: FDA-Public Use
  Company Number: US-BANPHARM-20130609

PATIENT
  Age: 47 Year
  Sex: Female
  Weight: 72.57 kg

DRUGS (1)
  1. ALEVE LIQUID GELS 220MG [Suspect]
     Indication: BACK PAIN
     Dosage: 2 DF, ONCE,
     Route: 048
     Dates: start: 20130126, end: 20130126

REACTIONS (4)
  - Pruritus [Not Recovered/Not Resolved]
  - Rash macular [Not Recovered/Not Resolved]
  - Erythema [Not Recovered/Not Resolved]
  - Blister [Not Recovered/Not Resolved]
